FAERS Safety Report 5012549-1 (Version None)
Quarter: 2006Q2

REPORT INFORMATION
  Report Type: 
  Country: None (occurrence: None)
  Receive Date: 20060416
  Receipt Date: 20060114
  Transmission Date: 20061013
  Serious: No
  Sender: FDA-Public Use
  Company Number: 2006SP000260

PATIENT
  Sex: Male

DRUGS (1)
  1. LUNESTA [Suspect]
     Dosage: ORAL
     Route: 048

REACTIONS (1)
  - EYE PAIN [None]
